FAERS Safety Report 13819252 (Version 2)
Quarter: 2018Q1

REPORT INFORMATION
  Report Type: Report from Study
  Country: US (occurrence: US)
  Receive Date: 20170731
  Receipt Date: 20180201
  Transmission Date: 20180508
  Serious: No
  Sender: FDA-Public Use
  Company Number: US-EXELIXIS-CABO-17008622

PATIENT
  Age: 61 Year
  Sex: Male

DRUGS (16)
  1. ZINC. [Concomitant]
     Active Substance: ZINC
  2. FENOFIBRATE. [Concomitant]
     Active Substance: FENOFIBRATE
  3. LOPRESSOR [Concomitant]
     Active Substance: METOPROLOL TARTRATE
  4. FISH OIL [Concomitant]
     Active Substance: FISH OIL
  5. MAG-OX [Concomitant]
     Active Substance: MAGNESIUM OXIDE
  6. NORCO [Concomitant]
     Active Substance: ACETAMINOPHEN\HYDROCODONE BITARTRATE
  7. TURMERIC [Concomitant]
     Active Substance: HERBALS\TURMERIC
  8. METOPROLOL. [Concomitant]
     Active Substance: METOPROLOL
  9. VITAMIN B12 [Concomitant]
     Active Substance: CYANOCOBALAMIN
  10. ELIQUIS [Concomitant]
     Active Substance: APIXABAN
  11. CALCIUM [Concomitant]
     Active Substance: CALCIUM
  12. COPPER [Concomitant]
     Active Substance: COPPER
  13. PROBIOTIC [Concomitant]
     Active Substance: PROBIOTICS NOS
  14. CABOMETYX [Suspect]
     Active Substance: CABOZANTINIB S-MALATE
     Indication: RENAL CELL CARCINOMA
     Dosage: 60 MG, QD
     Route: 048
     Dates: start: 20170218, end: 20170317
  15. IODINE. [Concomitant]
     Active Substance: IODINE
  16. FLAXSEED [Concomitant]
     Active Substance: FLAX SEED

REACTIONS (5)
  - Renal pain [Unknown]
  - Abdominal pain [Unknown]
  - Musculoskeletal pain [Unknown]
  - Back pain [Unknown]
  - Pain [Not Recovered/Not Resolved]

NARRATIVE: CASE EVENT DATE: 20170317
